FAERS Safety Report 6804714-5 (Version None)
Quarter: 2010Q2

REPORT INFORMATION
  Report Type: 
  Country: None (occurrence: None)
  Receive Date: 20100628
  Receipt Date: 20070508
  Transmission Date: 20101027
  Serious: No
  Sender: FDA-Public Use
  Company Number: US-PFIZER INC-2007037001

PATIENT
  Sex: Male

DRUGS (2)
  1. GEODON [Suspect]
  2. DEPAKOTE [Suspect]

REACTIONS (1)
  - SEXUAL DYSFUNCTION [None]
